FAERS Safety Report 6244982-4 (Version None)
Quarter: 2009Q2

REPORT INFORMATION
  Report Type: 
  Country: None (occurrence: None)
  Receive Date: 20090619
  Receipt Date: 20090302
  Transmission Date: 20091009
  Serious: No
  Sender: FDA-Public Use
  Company Number: ALL1-2009-00556

PATIENT
  Age: 13 Year
  Sex: Male
  Weight: 56.7 kg

DRUGS (4)
  1. VYVANSE [Suspect]
     Indication: ATTENTION DEFICIT/HYPERACTIVITY DISORDER
     Dosage: 50 MG, 1X/DAY:QD, ORAL
     Route: 048
     Dates: start: 20081001
  2. SEROQUEL [Concomitant]
  3. PATANOL [Concomitant]
  4. LORTADINE (LORATADINE) [Concomitant]

REACTIONS (6)
  - AGGRESSION [None]
  - ANXIETY [None]
  - IMPULSIVE BEHAVIOUR [None]
  - NASOPHARYNGITIS [None]
  - NEGATIVISM [None]
  - OFF LABEL USE [None]
